FAERS Safety Report 20233735 (Version 2)
Quarter: 2022Q1

REPORT INFORMATION
  Report Type: Spontaneous
  Country: US (occurrence: US)
  Receive Date: 20211227
  Receipt Date: 20220118
  Transmission Date: 20220423
  Serious: Yes (Death, Hospitalization)
  Sender: FDA-Public Use
  Company Number: US-BIOGEN-2021BI01078967

PATIENT
  Age: 21 Year
  Sex: Female
  Weight: 38.1 kg

DRUGS (1)
  1. SPINRAZA [Suspect]
     Active Substance: NUSINERSEN
     Indication: Spinal muscular atrophy
     Route: 037
     Dates: start: 20180905, end: 20210831

REACTIONS (2)
  - Acute respiratory failure [Fatal]
  - Pneumonia mycoplasmal [Fatal]

NARRATIVE: CASE EVENT DATE: 20211121
